FAERS Safety Report 18642801 (Version 1)
Quarter: 2020Q4

REPORT INFORMATION
  Report Type: Report from Study
  Country: US (occurrence: US)
  Receive Date: 20201221
  Receipt Date: 20201221
  Transmission Date: 20210114
  Serious: Yes (Hospitalization)
  Sender: FDA-Public Use
  Company Number: US-EISAI MEDICAL RESEARCH-EC-2020-084287

PATIENT
  Age: 66 Year
  Sex: Female

DRUGS (1)
  1. LENVIMA [Suspect]
     Active Substance: LENVATINIB
     Indication: ENDOMETRIAL CANCER
     Route: 048
     Dates: start: 20201112, end: 2020

REACTIONS (6)
  - Fatigue [Unknown]
  - Constipation [Unknown]
  - Diarrhoea [Unknown]
  - Hypertension [Unknown]
  - Tenderness [Unknown]
  - Abdominal distension [Unknown]

NARRATIVE: CASE EVENT DATE: 2020
